FAERS Safety Report 9772342 (Version 1)
Quarter: 2013Q4

REPORT INFORMATION
  Report Type: Spontaneous
  Country: US (occurrence: None)
  Receive Date: 20131217
  Receipt Date: 20131217
  Transmission Date: 20140711
  Serious: Yes (Death, Other)
  Sender: FDA-Public Use
  Company Number: UTC-041782

PATIENT
  Sex: Female

DRUGS (2)
  1. REMODULIN (INJECTION FOR INFUSION) (TREPROSTINIL SODIUM) [Suspect]
     Indication: PULMONARY ARTERIAL HYPERTENSION
     Route: 041
  2. AMBRISENTAN [Concomitant]

REACTIONS (3)
  - Pneumonia [None]
  - Right ventricular failure [None]
  - Sepsis syndrome [None]
